FAERS Safety Report 5017431-1 (Version None)
Quarter: 2006Q2

REPORT INFORMATION
  Report Type: 
  Country: None (occurrence: None)
  Receive Date: 20060414
  Receipt Date: 20060227
  Transmission Date: 20061013
  Serious: No
  Sender: FDA-Public Use
  Company Number: 2006SP000954

PATIENT
  Age: 82 Year
  Sex: Female
  Weight: 65.7716 kg

DRUGS (10)
  1. LUNESTA [Suspect]
     Indication: INSOMNIA
     Dosage: 2 MG; ORAL
     Route: 048
     Dates: start: 20060201, end: 20060201
  2. LORAZEPAM [Concomitant]
  3. FOSAMAX [Concomitant]
  4. OSCAL [Concomitant]
  5. LEVOXYL [Concomitant]
  6. NADOLOL [Concomitant]
  7. LISINOPRIL [Concomitant]
  8. HYDROCHLOROTHIAZIDE [Concomitant]
  9. LOVASTATIN [Concomitant]
  10. ZETIA [Concomitant]

REACTIONS (1)
  - INITIAL INSOMNIA [None]
